FAERS Safety Report 16145542 (Version 2)
Quarter: 2019Q2

REPORT INFORMATION
  Report Type: Spontaneous
  Country: US (occurrence: US)
  Receive Date: 20190402
  Receipt Date: 20190510
  Transmission Date: 20190711
  Serious: Yes (Other)
  Sender: FDA-Public Use
  Company Number: US-ROCHE-2288985

PATIENT
  Sex: Male

DRUGS (3)
  1. OCREVUS [Suspect]
     Active Substance: OCRELIZUMAB
     Indication: SECONDARY PROGRESSIVE MULTIPLE SCLEROSIS
     Dosage: 1ST COURSE
     Route: 065
     Dates: start: 20190110
  2. BOTOX [Concomitant]
     Active Substance: ONABOTULINUMTOXINA
     Indication: OFF LABEL USE
     Route: 065
     Dates: start: 20190214
  3. OCREVUS [Suspect]
     Active Substance: OCRELIZUMAB
     Indication: OFF LABEL USE
     Dosage: 1ST COURSE
     Route: 065
     Dates: start: 20190125

REACTIONS (3)
  - Off label use [Unknown]
  - Intentional product use issue [Unknown]
  - Meningitis borrelia [Unknown]
